FAERS Safety Report 8117899-8 (Version None)
Quarter: 2012Q1

REPORT INFORMATION
  Report Type: 
  Country: None (occurrence: None)
  Receive Date: 20120131
  Receipt Date: 20120120
  Transmission Date: 20120608
  Serious: Yes (Other)
  Sender: FDA-Public Use
  Company Number: 1000025018

PATIENT
  Age: 33 Year
  Sex: Female

DRUGS (5)
  1. TRUVADA [Suspect]
     Dosage: ORAL
     Route: 048
     Dates: start: 20090101, end: 20110921
  2. APPROVEL(IRBESARTAN) (IRBESARTAN) [Concomitant]
  3. TERCIAN (CYAMEMAZINE) [Suspect]
     Dosage: ORAL
     Route: 048
  4. ESCITALOPRAM OXALATE [Suspect]
     Dosage: ORAL
     Route: 048
     Dates: start: 20110509, end: 20111108
  5. ISENTRESS [Suspect]
     Dosage: ORAL
     Route: 048
     Dates: start: 20100101, end: 20110921

REACTIONS (4)
  - AMYLASE INCREASED [None]
  - LIPASE INCREASED [None]
  - BILIARY DILATATION [None]
  - ABDOMINAL PAIN [None]
